FAERS Safety Report 20244561 (Version 1)
Quarter: 2021Q4

REPORT INFORMATION
  Report Type: Report from Study
  Country: UG (occurrence: UG)
  Receive Date: 20211229
  Receipt Date: 20211229
  Transmission Date: 20220303
  Serious: Yes (Hospitalization, Other)
  Sender: FDA-Public Use
  Company Number: UG-CIPLA LTD.-2021UG08342

PATIENT

DRUGS (2)
  1. LOPINAVIR\RITONAVIR [Suspect]
     Active Substance: LOPINAVIR\RITONAVIR
     Indication: HIV infection
     Dosage: UNK, BID
     Route: 048
  2. ABACAVIR\LAMIVUDINE [Suspect]
     Active Substance: ABACAVIR\LAMIVUDINE
     Indication: HIV infection
     Dosage: UNK, BID
     Route: 048

REACTIONS (4)
  - Malaria [None]
  - Otitis media [Recovered/Resolved]
  - Cough [Unknown]
  - Rash [Unknown]

NARRATIVE: CASE EVENT DATE: 20180113
